FAERS Safety Report 6025725-6 (Version None)
Quarter: 2008Q4

REPORT INFORMATION
  Report Type: 
  Country: None (occurrence: None)
  Receive Date: 20081231
  Receipt Date: 20081230
  Transmission Date: 20090506
  Serious: Yes (Other)
  Sender: FDA-Public Use
  Company Number: US-ABBOTT-08P-163-0495277-00

PATIENT
  Sex: Female
  Weight: 62.198 kg

DRUGS (4)
  1. HUMIRA [Suspect]
     Indication: ANKYLOSING SPONDYLITIS
     Dates: start: 20080101, end: 20081001
  2. HUMIRA [Suspect]
     Dates: start: 20081101, end: 20081201
  3. HUMIRA [Suspect]
     Dates: start: 20081201
  4. METHOTREXATE [Concomitant]
     Indication: DRUG USE FOR UNKNOWN INDICATION

REACTIONS (2)
  - BREAST MASS [None]
  - LIPOMA [None]
